FAERS Safety Report 7233258-4 (Version None)
Quarter: 2011Q1

REPORT INFORMATION
  Report Type: 
  Country: None (occurrence: None)
  Receive Date: 20110119
  Receipt Date: 20110114
  Transmission Date: 20110831
  Serious: Yes (Other)
  Sender: FDA-Public Use
  Company Number: B0694146A

PATIENT
  Sex: Male

DRUGS (4)
  1. OKI [Suspect]
     Indication: TOOTH ABSCESS
     Route: 065
     Dates: start: 20101217, end: 20101219
  2. APROVEL [Concomitant]
     Dosage: 150MG PER DAY
     Route: 048
     Dates: start: 20091220, end: 20101212
  3. AUGMENTIN '125' [Suspect]
     Indication: TOOTH ABSCESS
     Dosage: 2G PER DAY
     Route: 048
     Dates: start: 20101217, end: 20101219
  4. CO-EFFERALGAN [Suspect]
     Indication: TOOTH ABSCESS
     Route: 065
     Dates: start: 20101217, end: 20101219

REACTIONS (2)
  - DYSPHAGIA [None]
  - FACE OEDEMA [None]
